FAERS Safety Report 13739009 (Version 2)
Quarter: 2018Q2

REPORT INFORMATION
  Report Type: Report from Study
  Country: US (occurrence: US)
  Receive Date: 20170710
  Receipt Date: 20180627
  Transmission Date: 20180711
  Serious: Yes (Hospitalization, Other)
  Sender: FDA-Public Use
  Company Number: US-SAOL THERAPEUTICS-2017SAO00080

PATIENT
  Age: 67 Year
  Sex: Female

DRUGS (90)
  1. COMPOUNDED BACLOFEN [Suspect]
     Active Substance: BACLOFEN
     Dosage: 434.24 ?G, \DAY, MAX DOSE
     Route: 037
     Dates: start: 20170906, end: 20170914
  2. DILAUDID [Suspect]
     Active Substance: HYDROMORPHONE HYDROCHLORIDE
     Dosage: 1.200 MG, \DAY
     Route: 037
     Dates: start: 20170720, end: 20170824
  3. DILAUDID [Suspect]
     Active Substance: HYDROMORPHONE HYDROCHLORIDE
     Dosage: 1.000 MG, \DAY
     Route: 037
     Dates: start: 20170906
  4. DILAUDID [Suspect]
     Active Substance: HYDROMORPHONE HYDROCHLORIDE
     Dosage: 1.590 MG, \DAY
     Route: 037
     Dates: start: 20170924
  5. BUPIVACAINE. [Suspect]
     Active Substance: BUPIVACAINE
     Dosage: 8.000 MG, \DAY
     Route: 037
     Dates: start: 20170720, end: 20170824
  6. CLONIDINE. [Suspect]
     Active Substance: CLONIDINE
     Dosage: 60.04 ?G, \DAY
     Route: 037
     Dates: start: 20151210
  7. CLONIDINE. [Suspect]
     Active Substance: CLONIDINE
     Dosage: 100.07 ?G, \DAY
     Route: 037
     Dates: start: 20170906
  8. MORPHINE [Suspect]
     Active Substance: MORPHINE
     Dosage: 2.7913 MG, \DAY
     Route: 037
     Dates: start: 20150331
  9. COMPOUNDED BACLOFEN [Suspect]
     Active Substance: BACLOFEN
     Dosage: 350.08 ?G, \DAY, MAX DOSE
     Route: 037
     Dates: start: 20151102
  10. COMPOUNDED BACLOFEN [Suspect]
     Active Substance: BACLOFEN
     Dosage: 246.21 ?G, \DAY
     Route: 037
     Dates: start: 20151106
  11. COMPOUNDED BACLOFEN [Suspect]
     Active Substance: BACLOFEN
     Dosage: 237.30 ?G, \DAY, MAX DOSE
     Route: 037
     Dates: start: 20151210
  12. COMPOUNDED BACLOFEN [Suspect]
     Active Substance: BACLOFEN
     Dosage: 400.26 ?G, \DAY
     Route: 037
     Dates: start: 20170131
  13. DILAUDID [Suspect]
     Active Substance: HYDROMORPHONE HYDROCHLORIDE
     Dosage: 2.001 MG, \DAY
     Route: 037
     Dates: start: 20170131
  14. BUPIVACAINE. [Suspect]
     Active Substance: BUPIVACAINE
     Dosage: 7.83 MG, \DAY
     Route: 037
     Dates: start: 20151102
  15. BUPIVACAINE. [Suspect]
     Active Substance: BUPIVACAINE
     Dosage: 14.211 MG, \DAY, MAX DOSE
     Route: 037
     Dates: start: 20151106
  16. BUPIVACAINE. [Suspect]
     Active Substance: BUPIVACAINE
     Dosage: 8.192 MG, \DAY
     Route: 037
     Dates: start: 20170111, end: 20170117
  17. BUPIVACAINE. [Suspect]
     Active Substance: BUPIVACAINE
     Dosage: 13.342 MG, \DAY
     Route: 037
     Dates: start: 20170131
  18. CLONIDINE. [Suspect]
     Active Substance: CLONIDINE
     Dosage: 292.89 ?G, \DAY, MAX DOSE
     Route: 037
     Dates: start: 20170131
  19. MORPHINE [Suspect]
     Active Substance: MORPHINE
     Dosage: 2.0024 MG, \DAY
     Route: 037
     Dates: start: 20150331
  20. COMPOUNDED BACLOFEN [Suspect]
     Active Substance: BACLOFEN
     Dosage: 234.89 ?G, \DAY
     Route: 037
     Dates: start: 20151102
  21. COMPOUNDED BACLOFEN [Suspect]
     Active Substance: BACLOFEN
     Dosage: 380.88 ?G, \DAY, MAX DOSE
     Route: 037
     Dates: start: 20170117, end: 20170131
  22. COMPOUNDED BACLOFEN [Suspect]
     Active Substance: BACLOFEN
     Dosage: 585.78 MG, \DAY, MAX DOSE
     Route: 037
     Dates: start: 20170131
  23. DILAUDID [Suspect]
     Active Substance: HYDROMORPHONE HYDROCHLORIDE
     Dosage: 1.7504 MG, \DAY, MAX DOSE
     Route: 037
     Dates: start: 20151102, end: 20151102
  24. DILAUDID [Suspect]
     Active Substance: HYDROMORPHONE HYDROCHLORIDE
     Dosage: 0.900 MG, \DAY
     Route: 037
     Dates: start: 20170824, end: 20170906
  25. BUPIVACAINE. [Suspect]
     Active Substance: BUPIVACAINE
     Dosage: 5.006 MG, \DAY
     Route: 037
     Dates: start: 20150331
  26. BUPIVACAINE. [Suspect]
     Active Substance: BUPIVACAINE
     Dosage: 8.207 MG, \DAY
     Route: 037
     Dates: start: 20151106
  27. CLONIDINE. [Suspect]
     Active Substance: CLONIDINE
     Dosage: 208.18 ?G, \DAY, MAX DOSE
     Route: 037
     Dates: start: 20170824, end: 20170906
  28. CLONIDINE. [Suspect]
     Active Substance: CLONIDINE
     Dosage: 217.12 ?G, \DAY, MAX DOSE
     Route: 037
     Dates: start: 20170906
  29. COMPOUNDED BACLOFEN [Suspect]
     Active Substance: BACLOFEN
     Dosage: 312.47 ?G, \DAY, MAX DOSE
     Route: 037
     Dates: start: 20151008
  30. COMPOUNDED BACLOFEN [Suspect]
     Active Substance: BACLOFEN
     Dosage: 425.75 ?G, \DAY, MAX DOSE
     Route: 037
     Dates: start: 20170111, end: 20170117
  31. COMPOUNDED BACLOFEN [Suspect]
     Active Substance: BACLOFEN
     Dosage: 416.36 ?G, \DAY
     Route: 037
     Dates: start: 20170824, end: 20170906
  32. DILAUDID [Suspect]
     Active Substance: HYDROMORPHONE HYDROCHLORIDE
     Dosage: 1.228 MG, \DAY
     Route: 037
     Dates: start: 20170111, end: 20170111
  33. DILAUDID [Suspect]
     Active Substance: HYDROMORPHONE HYDROCHLORIDE
     Dosage: 2.928 MG, \DAY, MAX DOSE
     Route: 037
     Dates: start: 20170131
  34. BUPIVACAINE. [Suspect]
     Active Substance: BUPIVACAINE
     Dosage: 11.669 MG, \DAY, MAX DOSE
     Route: 037
     Dates: start: 20151102
  35. BUPIVACAINE. [Suspect]
     Active Substance: BUPIVACAINE
     Dosage: 6.671 MG, \DAY
     Route: 037
     Dates: start: 20170117, end: 20170131
  36. BUPIVACAINE. [Suspect]
     Active Substance: BUPIVACAINE
     Dosage: 13.879 MG, \DAY, MAX DOSE
     Route: 037
     Dates: start: 20170824, end: 20170906
  37. CLONIDINE. [Suspect]
     Active Substance: CLONIDINE
     Dosage: 104.67 ?G, \DAY, MAX DOSE
     Route: 037
     Dates: start: 20150331
  38. CLONIDINE. [Suspect]
     Active Substance: CLONIDINE
     Dosage: 213.17 ?G, \DAY, MAX DOSE
     Route: 037
     Dates: start: 20151106
  39. FENTANYL. [Suspect]
     Active Substance: FENTANYL
     Dosage: 100.7 ?G, \DAY
     Route: 037
     Dates: start: 20151210
  40. COMPOUNDED BACLOFEN [Suspect]
     Active Substance: BACLOFEN
     Dosage: 150.18 ?G, \DAY
     Route: 037
     Dates: start: 20150331
  41. COMPOUNDED BACLOFEN [Suspect]
     Active Substance: BACLOFEN
     Dosage: 195.74 ?G, \DAY
     Route: 037
     Dates: start: 20151008
  42. DILAUDID [Suspect]
     Active Substance: HYDROMORPHONE HYDROCHLORIDE
     Dosage: 1.2311 MG, \DAY
     Route: 037
     Dates: start: 20151106
  43. DILAUDID [Suspect]
     Active Substance: HYDROMORPHONE HYDROCHLORIDE
     Dosage: 2.128 MG, \DAY, MAX DOSE
     Route: 037
     Dates: start: 20170111, end: 20170117
  44. DILAUDID [Suspect]
     Active Substance: HYDROMORPHONE HYDROCHLORIDE
     Dosage: 2.081 MG, \DAY, MAX DOSE
     Route: 037
     Dates: start: 20170824, end: 20170906
  45. BUPIVACAINE. [Suspect]
     Active Substance: BUPIVACAINE
     Dosage: 10.416 MG, \DAY, MAX DOSE
     Route: 037
     Dates: start: 20151008
  46. BUPIVACAINE. [Suspect]
     Active Substance: BUPIVACAINE
     Dosage: 14.192 MG, \DAY, MAX DOSE
     Route: 037
     Dates: start: 20170111, end: 20170117
  47. CLONIDINE. [Suspect]
     Active Substance: CLONIDINE
     Dosage: 75.09 ?G, \DAY
     Route: 037
     Dates: start: 20150331
  48. CLONIDINE. [Suspect]
     Active Substance: CLONIDINE
     Dosage: 156.23 ?G, \DAY, MAX DOSE
     Route: 037
     Dates: start: 20151008
  49. CLONIDINE. [Suspect]
     Active Substance: CLONIDINE
     Dosage: 122.88 ?G, \DAY
     Route: 037
     Dates: start: 20170111, end: 20170117
  50. CLONIDINE. [Suspect]
     Active Substance: CLONIDINE
     Dosage: 222.03 MG, \DAY, MAX DOSE
     Route: 037
     Dates: start: 20170720, end: 20170824
  51. CLONIDINE. [Suspect]
     Active Substance: CLONIDINE
     Dosage: 90.09 ?G, \DAY
     Route: 037
     Dates: start: 20170824, end: 20170906
  52. FENTANYL. [Suspect]
     Active Substance: FENTANYL
     Dosage: 197.75 ?G, \DAY
     Route: 037
     Dates: start: 20151210
  53. COMPOUNDED BACLOFEN [Suspect]
     Active Substance: BACLOFEN
     Dosage: 120.08 ?G, \DAY
     Route: 037
     Dates: start: 20151210
  54. COMPOUNDED BACLOFEN [Suspect]
     Active Substance: BACLOFEN
     Dosage: 200.13 ?G, \DAY
     Route: 037
     Dates: start: 20170906, end: 20170914
  55. DILAUDID [Suspect]
     Active Substance: HYDROMORPHONE HYDROCHLORIDE
     Dosage: 0.9787 MG, \DAY
     Route: 037
     Dates: start: 20151008
  56. DILAUDID [Suspect]
     Active Substance: HYDROMORPHONE HYDROCHLORIDE
     Dosage: 1.1744 MG, \DAY
     Route: 037
     Dates: start: 20151102, end: 20151210
  57. DILAUDID [Suspect]
     Active Substance: HYDROMORPHONE HYDROCHLORIDE
     Dosage: 1 MG, \DAY
     Route: 037
     Dates: start: 20170117, end: 20170131
  58. BUPIVACAINE. [Suspect]
     Active Substance: BUPIVACAINE
     Dosage: 6.006 MG, \DAY
     Route: 037
     Dates: start: 20170824, end: 20170906
  59. BUPIVACAINE. [Suspect]
     Active Substance: BUPIVACAINE
     Dosage: 10.602 MG, \DAY
     Route: 037
     Dates: start: 20170914
  60. CLONIDINE. [Suspect]
     Active Substance: CLONIDINE
     Dosage: 123.11 ?G, \DAY
     Route: 037
     Dates: start: 20151106
  61. COMPOUNDED BACLOFEN [Suspect]
     Active Substance: BACLOFEN
     Dosage: 209.34 ?G, \DAY, MAX DOSE
     Route: 037
     Dates: start: 20150331
  62. COMPOUNDED BACLOFEN [Suspect]
     Active Substance: BACLOFEN
     Dosage: 245.76 ?G, \DAY
     Route: 037
     Dates: start: 20170111, end: 20170117
  63. COMPOUNDED BACLOFEN [Suspect]
     Active Substance: BACLOFEN
     Dosage: 240 ?G, \DAY
     Route: 037
     Dates: start: 20170720, end: 20170824
  64. COMPOUNDED BACLOFEN [Suspect]
     Active Substance: BACLOFEN
     Dosage: 444.05 ?G, \DAY, MAX DOSE
     Route: 037
     Dates: start: 20170720, end: 20170824
  65. COMPOUNDED BACLOFEN [Suspect]
     Active Substance: BACLOFEN
     Dosage: 318.05 ?G, \DAY
     Route: 037
     Dates: start: 20170924
  66. DILAUDID [Suspect]
     Active Substance: HYDROMORPHONE HYDROCHLORIDE
     Dosage: 1.5623 MG, \DAY, MAX DOSE
     Route: 037
     Dates: start: 20151008
  67. DILAUDID [Suspect]
     Active Substance: HYDROMORPHONE HYDROCHLORIDE
     Dosage: 2.171 MG, \DAY, MAX DOSE
     Route: 037
     Dates: start: 20170906
  68. BUPIVACAINE. [Suspect]
     Active Substance: BUPIVACAINE
     Dosage: 4.003 MG, \DAY
     Route: 037
     Dates: start: 20151210
  69. BUPIVACAINE. [Suspect]
     Active Substance: BUPIVACAINE
     Dosage: 12.696 MG, \DAY, MAX DOSE
     Route: 037
     Dates: start: 20170117, end: 20170131
  70. BUPIVACAINE. [Suspect]
     Active Substance: BUPIVACAINE
     Dosage: 19.526 MG, \DAY, MAX DOSE
     Route: 037
     Dates: start: 20170131
  71. BUPIVACAINE. [Suspect]
     Active Substance: BUPIVACAINE
     Dosage: 6.671 MG, \DAY
     Route: 037
     Dates: start: 20170906
  72. CLONIDINE. [Suspect]
     Active Substance: CLONIDINE
     Dosage: 175.04 ?G, \DAY, MAX DOSE
     Route: 037
     Dates: start: 20151102
  73. CLONIDINE. [Suspect]
     Active Substance: CLONIDINE
     Dosage: 100.07 ?G, \DAY
     Route: 037
     Dates: start: 20170117, end: 20170131
  74. CLONIDINE. [Suspect]
     Active Substance: CLONIDINE
     Dosage: 190.44 ?G, \DAY, MAX DOSE
     Route: 037
     Dates: start: 20170117, end: 20170131
  75. CLONIDINE. [Suspect]
     Active Substance: CLONIDINE
     Dosage: 200.13 ?G, \DAY
     Route: 037
     Dates: start: 20170131
  76. CLONIDINE. [Suspect]
     Active Substance: CLONIDINE
     Dosage: 120.0 ?G, \DAY
     Route: 037
     Dates: start: 20170720, end: 20170824
  77. COMPOUNDED BACLOFEN [Suspect]
     Active Substance: BACLOFEN
     Dosage: 426.33 ?G, \DAY, MAX DOSE
     Route: 037
     Dates: start: 20151106
  78. COMPOUNDED BACLOFEN [Suspect]
     Active Substance: BACLOFEN
     Dosage: 200.13 ?G, \DAY
     Route: 037
     Dates: start: 20170117, end: 20170131
  79. COMPOUNDED BACLOFEN [Suspect]
     Active Substance: BACLOFEN
     Dosage: 180.18 ?G, \DAY
     Route: 037
     Dates: start: 20170824, end: 20170906
  80. DILAUDID [Suspect]
     Active Substance: HYDROMORPHONE HYDROCHLORIDE
     Dosage: 2.1317 MG, \DAY, MAX DOSE
     Route: 037
     Dates: start: 20151106
  81. DILAUDID [Suspect]
     Active Substance: HYDROMORPHONE HYDROCHLORIDE
     Dosage: 1.904 MG, \DAY, MAX DOSE
     Route: 037
     Dates: start: 20170117, end: 20170131
  82. DILAUDID [Suspect]
     Active Substance: HYDROMORPHONE HYDROCHLORIDE
     Dosage: 2.220 MG, \DAY, MAX DOSE
     Route: 037
     Dates: start: 20170720, end: 20170824
  83. BUPIVACAINE. [Suspect]
     Active Substance: BUPIVACAINE
     Dosage: 6.978 MG, \DAY, MAX DOSE
     Route: 037
     Dates: start: 20150331
  84. BUPIVACAINE. [Suspect]
     Active Substance: BUPIVACAINE
     Dosage: 6.525 MG, \DAY
     Route: 037
     Dates: start: 20151008
  85. BUPIVACAINE. [Suspect]
     Active Substance: BUPIVACAINE
     Dosage: 14.802 MG, \DAY, MAX DOSE
     Route: 037
     Dates: start: 20170720, end: 20170824
  86. BUPIVACAINE. [Suspect]
     Active Substance: BUPIVACAINE
     Dosage: 14.475 MG, \DAY, MAX DOSE
     Route: 037
     Dates: start: 20170906
  87. CLONIDINE. [Suspect]
     Active Substance: CLONIDINE
     Dosage: 97.87 ?G, \DAY
     Route: 037
     Dates: start: 20151008
  88. CLONIDINE. [Suspect]
     Active Substance: CLONIDINE
     Dosage: 117.44 ?G, \DAY
     Route: 037
     Dates: start: 20151102
  89. CLONIDINE. [Suspect]
     Active Substance: CLONIDINE
     Dosage: 212.88 ?G, \DAY, MAX DOSE
     Route: 037
     Dates: start: 20170111, end: 20170117
  90. CLONIDINE. [Suspect]
     Active Substance: CLONIDINE
     Dosage: 159.03 ?G, \DAY
     Route: 037

REACTIONS (15)
  - Fatigue [Recovered/Resolved]
  - Meningitis bacterial [Recovered/Resolved]
  - Drug tolerance [Unknown]
  - Implant site infection [Recovered/Resolved]
  - Hyperaesthesia [Recovered/Resolved]
  - Influenza like illness [Recovered/Resolved]
  - Dizziness [Recovered/Resolved]
  - Toxicity to various agents [Not Recovered/Not Resolved]
  - Anxiety [Not Recovered/Not Resolved]
  - Device battery issue [Recovered/Resolved]
  - Drug withdrawal syndrome [Recovered/Resolved]
  - Implant site extravasation [Recovered/Resolved]
  - Pain [Recovered/Resolved]
  - Sedation [Recovered/Resolved]
  - Feeling of body temperature change [Not Recovered/Not Resolved]

NARRATIVE: CASE EVENT DATE: 20150914
